FAERS Safety Report 16805443 (Version 4)
Quarter: 2020Q4

REPORT INFORMATION
  Report Type: Report from Study
  Country: GT (occurrence: GT)
  Receive Date: 20190913
  Receipt Date: 20201126
  Transmission Date: 20210113
  Serious: Yes (Other)
  Sender: FDA-Public Use
  Company Number: PHHY2018GT140478

PATIENT
  Sex: Female

DRUGS (4)
  1. ETORICOXIB. [Suspect]
     Active Substance: ETORICOXIB
     Indication: PAIN
     Dosage: UNK UNK, QD
     Route: 065
  2. NORPROLAC [Concomitant]
     Active Substance: QUINAGOLIDE HYDROCHLORIDE
     Indication: PITUITARY TUMOUR BENIGN
     Dosage: UNK UNK, QD
     Route: 065
  3. GILENYA [Suspect]
     Active Substance: FINGOLIMOD HYDROCHLORIDE
     Indication: MULTIPLE SCLEROSIS
     Dosage: UNK
     Route: 065
  4. GILENYA [Suspect]
     Active Substance: FINGOLIMOD HYDROCHLORIDE
     Dosage: 0.5 MG, QD
     Route: 048
     Dates: start: 20181019

REACTIONS (34)
  - Cell death [Unknown]
  - Head discomfort [Recovering/Resolving]
  - Peripheral venous disease [Unknown]
  - Hypoaesthesia [Unknown]
  - Osteitis [Unknown]
  - Limb discomfort [Unknown]
  - Confusional state [Unknown]
  - Oedema [Unknown]
  - Contusion [Unknown]
  - Headache [Recovered/Resolved]
  - Expired product administered [Unknown]
  - Breast discharge [Unknown]
  - Pain in extremity [Unknown]
  - Paraesthesia [Unknown]
  - Anxiety [Recovering/Resolving]
  - Pain [Unknown]
  - Memory impairment [Unknown]
  - Multiple sclerosis relapse [Unknown]
  - Peripheral swelling [Unknown]
  - Visual impairment [Unknown]
  - Tremor [Recovered/Resolved]
  - Product dose omission issue [Unknown]
  - Drug ineffective [Unknown]
  - Malaise [Unknown]
  - Weight decreased [Recovered/Resolved]
  - Somnolence [Unknown]
  - Limb injury [Unknown]
  - Mass [Unknown]
  - Fatigue [Recovering/Resolving]
  - Photophobia [Unknown]
  - Fall [Unknown]
  - Swelling face [Unknown]
  - Haematoma [Unknown]
  - Oral discomfort [Unknown]
